FAERS Safety Report 24604668 (Version 1)
Quarter: 2024Q4

REPORT INFORMATION
  Report Type: Spontaneous
  Country: US (occurrence: US)
  Receive Date: 20241111
  Receipt Date: 20241111
  Transmission Date: 20250114
  Serious: No
  Sender: INCYTE
  Company Number: US-INCYTE CORPORATION-2024IN011548

PATIENT

DRUGS (2)
  1. OPZELURA [Suspect]
     Active Substance: RUXOLITINIB PHOSPHATE
     Indication: Lichen sclerosus
     Dosage: UNK
     Route: 065
  2. ESTROGENS [Concomitant]
     Active Substance: ESTROGENS
     Indication: Lichen sclerosus
     Dosage: UNK
     Route: 061

REACTIONS (1)
  - Off label use [Unknown]
